FAERS Safety Report 7655962-6 (Version None)
Quarter: 2011Q3

REPORT INFORMATION
  Report Type: 
  Country: None (occurrence: None)
  Receive Date: 20110804
  Receipt Date: 20110729
  Transmission Date: 20111222
  Serious: Yes (Hospitalization)
  Sender: FDA-Public Use
  Company Number: BR-ROCHE-765402

PATIENT
  Sex: Female
  Weight: 150 kg

DRUGS (16)
  1. MABTHERA [Suspect]
     Indication: RHEUMATOID ARTHRITIS
     Dosage: FORM: INFUSION
     Route: 065
     Dates: start: 20090801, end: 20110301
  2. REVATIO [Concomitant]
  3. OMEPRAZOLE [Concomitant]
  4. ALENIA [Concomitant]
     Indication: ASTHMA
  5. DIAZEPAM [Suspect]
     Route: 065
  6. HYDROXYCHLOROQUINE SULFATE [Concomitant]
  7. SERTRALINE HYDROCHLORIDE [Concomitant]
  8. HYDROCHLOROTHIAZIDE [Concomitant]
  9. HIPOGLOS [Concomitant]
  10. CHLOROQUINE [Concomitant]
  11. AMITRIPTYLINE HCL [Concomitant]
  12. CLONAZEPAM [Concomitant]
  13. NEOSALDINA [Concomitant]
  14. PREDNISONE [Concomitant]
  15. ALDACTONE [Concomitant]
  16. NYSTATIN [Concomitant]

REACTIONS (2)
  - PULMONARY HYPERTENSION [None]
  - HYPERSENSITIVITY [None]
